FAERS Safety Report 11495283 (Version 1)
Quarter: 2015Q3

REPORT INFORMATION
  Report Type: Report from Study
  Country: DE (occurrence: DE)
  Receive Date: 20150911
  Receipt Date: 20150911
  Transmission Date: 20151125
  Serious: Yes (Hospitalization)
  Sender: FDA-Public Use
  Company Number: DE-BIOGENIDEC-2015BI123910

PATIENT
  Age: 30 Year
  Sex: Female

DRUGS (2)
  1. PLEGRIDY [Suspect]
     Active Substance: PEGINTERFERON BETA-1A
     Indication: MULTIPLE SCLEROSIS
     Route: 058
     Dates: start: 20150509, end: 20150710
  2. IBUPROFEN. [Concomitant]
     Active Substance: IBUPROFEN
     Indication: PROPHYLAXIS
     Dates: start: 20150509, end: 201507

REACTIONS (6)
  - Dyspnoea [Recovered/Resolved]
  - Hand fracture [Unknown]
  - Multiple sclerosis relapse [Unknown]
  - Alopecia [Not Recovered/Not Resolved]
  - Injection site hypersensitivity [Recovered/Resolved]
  - Fall [Recovered/Resolved]

NARRATIVE: CASE EVENT DATE: 2015
